FAERS Safety Report 4686036-4 (Version None)
Quarter: 2005Q2

REPORT INFORMATION
  Report Type: 
  Country: None (occurrence: None)
  Receive Date: 20050609
  Receipt Date: 20050601
  Transmission Date: 20051028
  Serious: Yes (Death)
  Sender: FDA-Public Use
  Company Number: JP-JNJFOC-20050601532

PATIENT
  Age: 60 Year
  Sex: Male

DRUGS (3)
  1. RISPERDAL [Suspect]
     Route: 049
  2. RISPERDAL [Suspect]
     Indication: DRUG USE FOR UNKNOWN INDICATION
     Dosage: REDUCED TO 1 MG.
     Route: 049
  3. LITHIUM CARBONATE [Concomitant]
     Route: 049

REACTIONS (2)
  - EXTRAPYRAMIDAL DISORDER [None]
  - MYOCARDIAL INFARCTION [None]
